FAERS Safety Report 20082908 (Version 1)
Quarter: 2021Q4

REPORT INFORMATION
  Report Type: Spontaneous
  Country: JP (occurrence: JP)
  Receive Date: 20211117
  Receipt Date: 20211117
  Transmission Date: 20220303
  Serious: Yes (Hospitalization, Other)
  Sender: FDA-Public Use
  Company Number: JP-NAPPMUNDI-GBR-2021-0092479

PATIENT
  Age: 78 Year
  Sex: Female

DRUGS (1)
  1. NORSPAN [Suspect]
     Active Substance: BUPRENORPHINE
     Indication: Product used for unknown indication
     Dosage: 1.25 MCG, Q1H
     Route: 062

REACTIONS (4)
  - Pyelonephritis [Unknown]
  - Abdominal pain lower [Unknown]
  - Vomiting [Unknown]
  - Wrong technique in product usage process [Unknown]
